FAERS Safety Report 7806046-5 (Version None)
Quarter: 2011Q4

REPORT INFORMATION
  Report Type: 
  Country: None (occurrence: None)
  Receive Date: 20111011
  Receipt Date: 20110930
  Transmission Date: 20120403
  Serious: Yes (Hospitalization)
  Sender: FDA-Public Use
  Company Number: CA-JNJFOC-20110606521

PATIENT
  Sex: Male

DRUGS (3)
  1. REMICADE [Suspect]
     Indication: RHEUMATOID ARTHRITIS
     Route: 042
     Dates: start: 20110622
  2. REMICADE [Suspect]
     Route: 042
     Dates: start: 20110608
  3. REMICADE [Suspect]
     Route: 042
     Dates: start: 20070101

REACTIONS (1)
  - NEOPLASM [None]
